FAERS Safety Report 20157832 (Version 3)
Quarter: 2021Q4

REPORT INFORMATION
  Report Type: Spontaneous
  Country: US (occurrence: US)
  Receive Date: 20211207
  Receipt Date: 20211222
  Transmission Date: 20220303
  Serious: Yes (Disabling, Other)
  Sender: FDA-Public Use
  Company Number: US-PFIZER INC-202101676433

PATIENT
  Age: 65 Year
  Sex: Female
  Weight: 81.633 kg

DRUGS (1)
  1. ZIPRASIDONE HYDROCHLORIDE [Suspect]
     Active Substance: ZIPRASIDONE HYDROCHLORIDE
     Indication: Antipsychotic therapy
     Dosage: 120 MG
     Dates: start: 2006

REACTIONS (3)
  - Tardive dyskinesia [Not Recovered/Not Resolved]
  - Tongue biting [Not Recovered/Not Resolved]
  - Compulsive lip biting [Not Recovered/Not Resolved]
